FAERS Safety Report 4434692-8 (Version None)
Quarter: 2004Q3

REPORT INFORMATION
  Report Type: 
  Country: None (occurrence: None)
  Receive Date: 20040730
  Receipt Date: 20030904
  Transmission Date: 20050211
  Serious: Yes (Hospitalization, Other)
  Sender: FDA-Public Use
  Company Number: 2003-09-0453

PATIENT
  Age: 48 Year
  Sex: Female
  Weight: 92.9874 kg

DRUGS (4)
  1. REBETOL [Suspect]
     Indication: HEPATITIS C
     Dosage: 1200 MG QD ORAL
     Route: 048
     Dates: start: 20000301, end: 20001028
  2. INFERGEN [Suspect]
     Indication: HEPATITIS C
  3. TRIAMTERENE [Concomitant]
  4. ATENOLOL [Concomitant]

REACTIONS (9)
  - AMNESIA [None]
  - ANKLE FRACTURE [None]
  - ARTHRALGIA [None]
  - BONE PAIN [None]
  - COSTOCHONDRITIS [None]
  - DYSPNOEA [None]
  - FATIGUE [None]
  - MYALGIA [None]
  - MYOCARDIAL INFARCTION [None]
